FAERS Safety Report 8502972-2 (Version None)
Quarter: 2012Q3

REPORT INFORMATION
  Report Type: 
  Country: None (occurrence: None)
  Receive Date: 20120711
  Receipt Date: 20120705
  Transmission Date: 20120928
  Serious: Yes (Other)
  Sender: FDA-Public Use
  Company Number: PHHY2012DE020562

PATIENT
  Sex: Male
  Weight: 107 kg

DRUGS (5)
  1. ACE INHIBITORS [Concomitant]
  2. DIURETICS [Concomitant]
  3. VITAMIN D [Concomitant]
  4. RASILEZ [Suspect]
     Indication: HYPERTENSION
     Dosage: 150 MG, PER DAY
     Route: 048
     Dates: start: 20120109, end: 20120306
  5. MARCUMAR [Concomitant]

REACTIONS (2)
  - BLOOD CREATININE INCREASED [None]
  - GLOMERULAR FILTRATION RATE DECREASED [None]
